FAERS Safety Report 24713324 (Version 1)
Quarter: 2024Q4

REPORT INFORMATION
  Report Type: Spontaneous
  Country: US (occurrence: None)
  Receive Date: 20241209
  Receipt Date: 20241209
  Transmission Date: 20250114
  Serious: No
  Sender: Public
  Company Number: None

PATIENT
  Age: 68 Year
  Sex: Male
  Weight: 104.85 kg

DRUGS (23)
  1. REZDIFFRA [Suspect]
     Active Substance: RESMETIROM
     Indication: Hepatic steatosis
     Dosage: 1 TABLET DAILY ORAL
     Route: 048
  2. MAGNESIUM OXIDE [Concomitant]
     Active Substance: MAGNESIUM OXIDE
  3. PANTOPRAZOLE [Concomitant]
     Active Substance: PANTOPRAZOLE
  4. isosorbide mono [Concomitant]
  5. CLINDAMYCIN [Concomitant]
     Active Substance: CLINDAMYCIN
  6. TAMSULOSIN [Concomitant]
     Active Substance: TAMSULOSIN
  7. LOSARTAN [Concomitant]
     Active Substance: LOSARTAN
  8. METOPROLOL [Concomitant]
     Active Substance: METOPROLOL
  9. FUROSEMIDE [Concomitant]
     Active Substance: FUROSEMIDE
  10. PREDNISONE [Concomitant]
     Active Substance: PREDNISONE
  11. ORGOVYX [Concomitant]
     Active Substance: RELUGOLIX
  12. FARXIGA [Concomitant]
     Active Substance: DAPAGLIFLOZIN PROPANEDIOL
  13. AMLODIPINE [Concomitant]
     Active Substance: AMLODIPINE BESYLATE
  14. ATORVASTATIN [Concomitant]
     Active Substance: ATORVASTATIN
  15. ELIQUIS [Concomitant]
     Active Substance: APIXABAN
  16. SOTALOL [Concomitant]
     Active Substance: SOTALOL
  17. OXYCODONE [Concomitant]
     Active Substance: OXYCODONE
  18. CLONAZEPAM [Concomitant]
     Active Substance: CLONAZEPAM
  19. CLOPBEASOL [Concomitant]
  20. ASPIRIN [Concomitant]
     Active Substance: ASPIRIN
  21. FISH OIL [Concomitant]
     Active Substance: FISH OIL
  22. CALCIUM [Concomitant]
     Active Substance: CALCIUM
  23. POTASSIUM [Concomitant]
     Active Substance: POTASSIUM

REACTIONS (4)
  - Nausea [None]
  - Muscle spasms [None]
  - Dizziness [None]
  - Diarrhoea [None]

NARRATIVE: CASE EVENT DATE: 20241206
